FAERS Safety Report 6014476-X (Version None)
Quarter: 2008Q4

REPORT INFORMATION
  Report Type: 
  Country: None (occurrence: None)
  Receive Date: 20081219
  Receipt Date: 20080728
  Transmission Date: 20090506
  Serious: No
  Sender: FDA-Public Use
  Company Number: A0736738A

PATIENT
  Age: 74 Year
  Sex: Male

DRUGS (10)
  1. AVODART [Suspect]
     Indication: BENIGN PROSTATIC HYPERPLASIA
     Dosage: 1CAP PER DAY
     Route: 048
     Dates: start: 20080101
  2. METOPROLOL TARTRATE [Concomitant]
  3. ACTOS [Concomitant]
  4. ASPIRIN [Concomitant]
  5. PLAVIX [Concomitant]
  6. AVAPRO [Concomitant]
  7. ALTACE [Concomitant]
  8. AMLODIPINE [Concomitant]
  9. TEKTURNA [Concomitant]
  10. NIASPAN [Concomitant]

REACTIONS (2)
  - DRUG INEFFECTIVE [None]
  - SOMNOLENCE [None]
